FAERS Safety Report 8449015-7 (Version None)
Quarter: 2012Q2

REPORT INFORMATION
  Report Type: 
  Country: None (occurrence: None)
  Receive Date: 20120619
  Receipt Date: 20120615
  Transmission Date: 20120825
  Serious: Yes (Other)
  Sender: FDA-Public Use
  Company Number: PHEH2012US012051

PATIENT
  Age: 72 Year
  Sex: Male
  Weight: 72.57 kg

DRUGS (1)
  1. EXELON [Suspect]
     Dosage: 4.6 MG, DAILY
     Route: 062
     Dates: start: 20120504, end: 20120531

REACTIONS (1)
  - HALLUCINATION [None]
